APPROVED DRUG PRODUCT: TAMIFLU
Active Ingredient: OSELTAMIVIR PHOSPHATE
Strength: EQ 12MG BASE/ML
Dosage Form/Route: FOR SUSPENSION;ORAL
Application: N021246 | Product #001
Applicant: HOFFMANN LA ROCHE INC
Approved: Dec 14, 2000 | RLD: No | RS: No | Type: DISCN